FAERS Safety Report 24459729 (Version 1)
Quarter: 2024Q4

REPORT INFORMATION
  Report Type: Report from Study
  Country: US (occurrence: US)
  Receive Date: 20241018
  Receipt Date: 20241018
  Transmission Date: 20250115
  Serious: No
  Sender: ROCHE
  Company Number: US-ROCHE-3532405

PATIENT
  Age: 59 Year
  Sex: Female

DRUGS (10)
  1. RITUXAN [Suspect]
     Active Substance: RITUXIMAB
     Indication: CREST syndrome
     Route: 041
     Dates: start: 202304, end: 202309
  2. CALCIUM CARBONATE;CALCIUM LACTATE;VITAMIN D3 [Concomitant]
     Dosage: 200 MG TABLET
  3. CYANOCOBALAMIN [Concomitant]
     Active Substance: CYANOCOBALAMIN
     Dosage: 1000 MCG SUBLINGUAL TABLET
  4. DEXAMETHASONE SODIUM PHOSPHATE [Concomitant]
     Active Substance: DEXAMETHASONE SODIUM PHOSPHATE
     Dosage: 4 MG/ML INJECTION SOLUTION
  5. FOLIC ACID [Concomitant]
     Active Substance: FOLIC ACID
     Dosage: 1 MG TABLET
  6. KETOROLAC [Concomitant]
     Active Substance: KETOROLAC TROMETHAMINE
     Dosage: 30MG/ML (1ML) INJECTION SOLUTION
  7. METHOTREXATE SODIUM [Concomitant]
     Active Substance: METHOTREXATE SODIUM
     Dosage: 2.5 MG TABLET
  8. TOLTERODINE [Concomitant]
     Active Substance: TOLTERODINE
     Dosage: 4 MG CAPSULE
  9. URSODIOL [Concomitant]
     Active Substance: URSODIOL
     Dosage: 300 MG CAPSULE
  10. VITAMIN B6 [Concomitant]
     Active Substance: PYRIDOXINE HYDROCHLORIDE
     Dosage: 100 MG TABLET

REACTIONS (4)
  - Cardiac murmur [Recovered/Resolved]
  - Chest pain [Recovered/Resolved]
  - Hypertension [Recovered/Resolved]
  - Off label use [Unknown]
